FAERS Safety Report 7808547-2 (Version None)
Quarter: 2011Q4

REPORT INFORMATION
  Report Type: 
  Country: None (occurrence: None)
  Receive Date: 20111012
  Receipt Date: 20110929
  Transmission Date: 20120403
  Serious: Yes (Hospitalization)
  Sender: FDA-Public Use
  Company Number: US-JNJFOC-20111003969

PATIENT
  Age: 28 Year
  Sex: Female

DRUGS (4)
  1. ESCITALOPRAM [Interacting]
     Indication: PRODUCT USED FOR UNKNOWN INDICATION
     Route: 065
  2. OMEPRAZOLE [Concomitant]
     Route: 065
  3. TRAMADOL HCL [Suspect]
     Indication: PRODUCT USED FOR UNKNOWN INDICATION
     Dosage: 600-800 MG DAILY
     Route: 048
  4. NAPROXEN [Concomitant]
     Route: 065

REACTIONS (5)
  - TACHYCARDIA [None]
  - INTENTIONAL OVERDOSE [None]
  - DRUG SCREEN FALSE POSITIVE [None]
  - DRUG INTERACTION [None]
  - PARTIAL SEIZURES [None]
